FAERS Safety Report 4838927-9 (Version None)
Quarter: 2005Q4

REPORT INFORMATION
  Report Type: 
  Country: None (occurrence: None)
  Receive Date: 20051123
  Receipt Date: 20051123
  Transmission Date: 20060501
  Serious: Yes (Other)
  Sender: FDA-Public Use
  Company Number: None

PATIENT
  Age: 33 Year
  Sex: Female
  Weight: 53.5244 kg

DRUGS (1)
  1. DEPO-PROVERA [Suspect]
     Indication: CONTRACEPTION
     Dosage: EVERY 3 MONTHS  IM
     Route: 030
     Dates: start: 20050920, end: 20051220

REACTIONS (13)
  - ANXIETY [None]
  - ARTHRALGIA [None]
  - CHEST PAIN [None]
  - CONDITION AGGRAVATED [None]
  - DYSFUNCTIONAL UTERINE BLEEDING [None]
  - FATIGUE [None]
  - HOT FLUSH [None]
  - INSOMNIA [None]
  - LOSS OF LIBIDO [None]
  - MOOD SWINGS [None]
  - MYALGIA [None]
  - NIGHT SWEATS [None]
  - POSTPARTUM DEPRESSION [None]
